FAERS Safety Report 5758370-8 (Version None)
Quarter: 2008Q2

REPORT INFORMATION
  Report Type: 
  Country: None (occurrence: None)
  Receive Date: 20080604
  Receipt Date: 20080527
  Transmission Date: 20081010
  Serious: Yes (Other)
  Sender: FDA-Public Use
  Company Number: GB-BAYER-200811331BNE

PATIENT
  Sex: Male

DRUGS (2)
  1. CIPROFLOXACIN HCL [Suspect]
     Indication: MYCOBACTERIAL INFECTION
  2. CLARITHROMYCIN [Concomitant]
     Indication: MYCOBACTERIAL INFECTION

REACTIONS (2)
  - EOSINOPHILIA [None]
  - PULMONARY HYPERTENSION [None]
